FAERS Safety Report 26059960 (Version 1)
Quarter: 2025Q4

REPORT INFORMATION
  Report Type: Spontaneous
  Country: US (occurrence: US)
  Receive Date: 20251118
  Receipt Date: 20251118
  Transmission Date: 20260117
  Serious: Yes (Other)
  Sender: PFIZER
  Company Number: US-PFIZER INC-202500223058

PATIENT
  Age: 46 Year
  Sex: Female

DRUGS (2)
  1. BUPIVACAINE HYDROCHLORIDE [Suspect]
     Active Substance: BUPIVACAINE HYDROCHLORIDE
     Indication: Post-acute COVID-19 syndrome
     Dosage: 3 ML 0.5%
  2. BETAMETHASONE [Suspect]
     Active Substance: BETAMETHASONE
     Indication: Post-acute COVID-19 syndrome
     Dosage: 12 MG

REACTIONS (2)
  - Horner^s syndrome [Unknown]
  - Off label use [Unknown]
